FAERS Safety Report 6999090-1 (Version None)
Quarter: 2010Q3

REPORT INFORMATION
  Report Type: 
  Country: None (occurrence: None)
  Receive Date: 20100920
  Receipt Date: 20100913
  Transmission Date: 20110219
  Serious: Yes (Hospitalization)
  Sender: FDA-Public Use
  Company Number: US-B.I. PHARMACEUTICALS,INC./RIDGEFIELD-2010-BP-07423BP

PATIENT
  Age: 72 Year
  Sex: Female

DRUGS (4)
  1. MICARDIS [Suspect]
     Indication: HYPERTENSION
     Dosage: 80 MG
     Route: 048
     Dates: start: 20000101
  2. ASPIRIN [Concomitant]
     Dosage: 80 MG
  3. CLARITIN [Concomitant]
     Indication: COUGH
  4. NASONEX [Concomitant]
     Indication: COUGH

REACTIONS (2)
  - CORONARY ARTERY OCCLUSION [None]
  - LUNG INFECTION [None]
